FAERS Safety Report 5915690-1 (Version None)
Quarter: 2008Q4

REPORT INFORMATION
  Report Type: 
  Country: None (occurrence: None)
  Receive Date: 20081010
  Receipt Date: 20081001
  Transmission Date: 20090506
  Serious: Yes (Other)
  Sender: FDA-Public Use
  Company Number: US-PFIZER INC-2008051126

PATIENT
  Sex: Male

DRUGS (1)
  1. BEXTRA [Suspect]
     Route: 048
     Dates: start: 20020801

REACTIONS (1)
  - CEREBROVASCULAR ACCIDENT [None]
